FAERS Safety Report 9202068 (Version 2)
Quarter: 2013Q2

REPORT INFORMATION
  Report Type: Spontaneous
  Country: EG (occurrence: None)
  Receive Date: 20130328
  Receipt Date: 20130415
  Transmission Date: 20140414
  Serious: Yes (Death, Hospitalization)
  Sender: FDA-Public Use
  Company Number: 220833

PATIENT
  Age: 60 Year
  Sex: Female
  Weight: 80 kg

DRUGS (2)
  1. INNOHEP [Suspect]
     Indication: THROMBOSIS PROPHYLAXIS
     Route: 058
     Dates: start: 201211, end: 201211
  2. INNOHEP [Suspect]
     Indication: PULMONARY EMBOLISM
     Route: 058
     Dates: start: 201211, end: 201211

REACTIONS (6)
  - Acute abdomen [None]
  - Pulmonary embolism [None]
  - Deep vein thrombosis [None]
  - Chemical peritonitis [None]
  - Drug ineffective [None]
  - Disease progression [None]
